FAERS Safety Report 11917586 (Version 3)
Quarter: 2016Q2

REPORT INFORMATION
  Report Type: Spontaneous
  Country: US (occurrence: US)
  Receive Date: 20160114
  Receipt Date: 20160509
  Transmission Date: 20160815
  Serious: Yes (Death, Other)
  Sender: FDA-Public Use
  Company Number: US-TEVA-625144USA

PATIENT
  Age: 59 Year
  Sex: Male

DRUGS (3)
  1. LEVOFLOXACIN. [Suspect]
     Active Substance: LEVOFLOXACIN
     Indication: TUBERCULOSIS
     Route: 065
  2. ETHAMBUTOL [Suspect]
     Active Substance: ETHAMBUTOL HYDROCHLORIDE
     Indication: TUBERCULOSIS
     Route: 065
  3. RIFABUTIN. [Suspect]
     Active Substance: RIFABUTIN
     Indication: TUBERCULOSIS
     Route: 065

REACTIONS (3)
  - Acute kidney injury [Unknown]
  - Intra-abdominal haemorrhage [Fatal]
  - Acute hepatic failure [Unknown]
